FAERS Safety Report 11314179 (Version 2)
Quarter: 2017Q1

REPORT INFORMATION
  Report Type: Spontaneous
  Country: JP (occurrence: JP)
  Receive Date: 20150727
  Receipt Date: 20170228
  Transmission Date: 20170428
  Serious: Yes (Death)
  Sender: FDA-Public Use
  Company Number: JP-TEVA-580372ISR

PATIENT
  Age: 92 Year
  Sex: Female
  Weight: 50 kg

DRUGS (4)
  1. LOXOPROFEN [Concomitant]
     Active Substance: LOXOPROFEN
     Indication: CANCER PAIN
     Route: 048
  2. E-FEN BUCCAL [Suspect]
     Active Substance: FENTANYL CITRATE
     Indication: BREAKTHROUGH PAIN
     Dosage: 50 MICROGRAM DAILY;
     Route: 002
     Dates: start: 20150708, end: 20150708
  3. FENTANYL. [Concomitant]
     Active Substance: FENTANYL
     Dosage: 2.1 MILLIGRAM DAILY;
     Route: 062
     Dates: start: 20150707, end: 20150712
  4. FENTANYL. [Concomitant]
     Active Substance: FENTANYL
     Indication: CANCER PAIN
     Dosage: 2.1 MILLIGRAM DAILY;
     Route: 062
     Dates: start: 20150707

REACTIONS (1)
  - Colorectal cancer [Fatal]

NARRATIVE: CASE EVENT DATE: 20150712
